FAERS Safety Report 10129681 (Version 1)
Quarter: 2014Q2

REPORT INFORMATION
  Report Type: Spontaneous
  Country: GB (occurrence: None)
  Receive Date: 20140424
  Receipt Date: 20140424
  Transmission Date: 20141212
  Serious: Yes (Other)
  Sender: FDA-Public Use
  Company Number: 2014SA045016

PATIENT
  Age: 56 Year
  Sex: Female

DRUGS (8)
  1. HYDROCORTISONE (HYDROCORTISONE) [Suspect]
     Indication: DERMATITIS ATOPIC
     Route: 061
  2. PREDNISONE (PREDNISONE) [Suspect]
     Indication: ECZEMA
     Route: 048
  3. AZATHIOPRINE (AZATHIOPRINE) [Suspect]
     Indication: STEROID THERAPY
  4. AZATHIOPRINE (AZATHIOPRINE) [Suspect]
     Indication: IMMUNOSUPPRESSION
  5. BETHOMETHASONE [Concomitant]
  6. DIPROPIONATE [Concomitant]
  7. BETAMETHASONE [Concomitant]
  8. VALERATE [Concomitant]

REACTIONS (1)
  - Cushing^s syndrome [None]
